FAERS Safety Report 25049854 (Version 1)
Quarter: 2025Q1

REPORT INFORMATION
  Report Type: Spontaneous
  Country: DE (occurrence: DE)
  Receive Date: 20250307
  Receipt Date: 20250307
  Transmission Date: 20250409
  Serious: Yes (Hospitalization, Other)
  Sender: BRISTOL-MYERS SQUIBB COMPANY
  Company Number: DE-DCGMA-25204681

PATIENT
  Age: 74 Year
  Sex: Female
  Weight: 95 kg

DRUGS (5)
  1. APIXABAN [Suspect]
     Active Substance: APIXABAN
     Indication: Atrial fibrillation
     Dosage: 5 MG 1-0-1?DAILY DOSE: 10 MG EVERY 1 DAY
  2. SIMVASTATIN [Concomitant]
     Active Substance: SIMVASTATIN
     Indication: Coronary artery disease
     Dosage: DAILY DOSE: 20 MG EVERY 1 DAY
  3. EFEROX [Concomitant]
     Active Substance: LEVOTHYROXINE SODIUM
     Indication: Hypothyroidism
     Dosage: DAILY DOSE: 50 UG EVERY 1 DAY
  4. CITALOPRAM [Concomitant]
     Active Substance: CITALOPRAM
     Indication: Product used for unknown indication
     Dosage: DAILY DOSE: 20 MG EVERY 1 DAY
  5. AMLODIPINE BESYLATE\HYDROCHLOROTHIAZIDE\VALSARTAN [Concomitant]
     Active Substance: AMLODIPINE BESYLATE\HYDROCHLOROTHIAZIDE\VALSARTAN
     Indication: Hypertension

REACTIONS (1)
  - Thrombocytopenia [Unknown]

NARRATIVE: CASE EVENT DATE: 20250115
